FAERS Safety Report 23717163 (Version 4)
Quarter: 2024Q2

REPORT INFORMATION
  Report Type: Spontaneous
  Country: US (occurrence: US)
  Receive Date: 20240408
  Receipt Date: 20240531
  Transmission Date: 20240716
  Serious: Yes (Other)
  Sender: FDA-Public Use
  Company Number: US-APOTEX-2024AP004264

PATIENT
  Age: 82 Year
  Sex: Male

DRUGS (1)
  1. BRIMONIDINE TARTRATE [Suspect]
     Active Substance: BRIMONIDINE TARTRATE
     Indication: Intraocular pressure test abnormal
     Dosage: UNK
     Route: 065
     Dates: start: 20240130

REACTIONS (7)
  - Blindness unilateral [Recovering/Resolving]
  - Retinal oedema [Recovered/Resolved]
  - Atrial fibrillation [Unknown]
  - Asthenopia [Unknown]
  - Metamorphopsia [Unknown]
  - Product substitution issue [Unknown]
  - Therapeutic response changed [Unknown]

NARRATIVE: CASE EVENT DATE: 20240101
